FAERS Safety Report 20053906 (Version 2)
Quarter: 2021Q4

REPORT INFORMATION
  Report Type: Spontaneous
  Country: BR (occurrence: BR)
  Receive Date: 20211110
  Receipt Date: 20211121
  Transmission Date: 20220303
  Serious: Yes (Death, Hospitalization, Disabling, Other)
  Sender: FDA-Public Use
  Company Number: None

PATIENT
  Age: 69 Year
  Sex: Male
  Weight: 40 kg

DRUGS (4)
  1. KEYTRUDA [Suspect]
     Active Substance: PEMBROLIZUMAB
     Indication: Head and neck cancer
     Dosage: UNK
     Route: 042
     Dates: start: 2019, end: 202011
  2. CODEINE PHOSPHATE [Concomitant]
     Active Substance: CODEINE PHOSPHATE
     Indication: Prophylaxis
     Dosage: POSOLOGY: DAILY USE
  3. MORPHINE [Concomitant]
     Active Substance: MORPHINE
     Indication: Prophylaxis
     Dosage: POSOLOGY: DAILY USE
  4. INSULIN PORK\INSULIN PURIFIED PORK [Concomitant]
     Active Substance: INSULIN PORK\INSULIN PURIFIED PORK
     Indication: Diabetes mellitus
     Dosage: POSOLOGY: DAILY ADMINISTRATION IN THE ABDOMEN

REACTIONS (8)
  - Malignant neoplasm progression [Fatal]
  - Monoplegia [Not Recovered/Not Resolved]
  - Tracheal resection [Unknown]
  - Asthenia [Not Recovered/Not Resolved]
  - Infusion site nerve damage [Unknown]
  - Weight decreased [Unknown]
  - Ill-defined disorder [Unknown]
  - Therapeutic response unexpected [Unknown]

NARRATIVE: CASE EVENT DATE: 20201101
